FAERS Safety Report 19024448 (Version 1)
Quarter: 2021Q1

REPORT INFORMATION
  Report Type: Other
  Country: US (occurrence: US)
  Receive Date: 20210318
  Receipt Date: 20210318
  Transmission Date: 20210420
  Serious: Yes (Other)
  Sender: FDA-Public Use
  Company Number: US-ROCHE-2786891

PATIENT
  Age: 40 Year
  Sex: Male

DRUGS (1)
  1. TOCILIZUMAB. [Suspect]
     Active Substance: TOCILIZUMAB
     Indication: TRANSPLANT REJECTION
     Dosage: 5 DOSES AT 1 MONTH INTERVALS
     Route: 042

REACTIONS (2)
  - Off label use [Unknown]
  - Hyperbilirubinaemia [Recovered/Resolved]
